FAERS Safety Report 7278414-4 (Version None)
Quarter: 2011Q1

REPORT INFORMATION
  Report Type: 
  Country: None (occurrence: None)
  Receive Date: 20110207
  Receipt Date: 20110128
  Transmission Date: 20110831
  Serious: Yes (Life-Threatening, Hospitalization)
  Sender: FDA-Public Use
  Company Number: US-ELI_LILLY_AND_COMPANY-US201101007386

PATIENT
  Sex: Female
  Weight: 61 kg

DRUGS (17)
  1. PEMETREXED [Suspect]
     Dosage: 500 MG/M2, EVERY 3 WEEKS
     Route: 042
     Dates: start: 20100413
  2. CLOPIDOGREL [Concomitant]
     Indication: HYPERCHOLESTEROLAEMIA
     Dates: start: 20100101
  3. CISPLATIN [Suspect]
     Indication: NON-SMALL CELL LUNG CANCER STAGE III
     Dosage: 75 MG/M2, EVERY 3 WEEKS
     Route: 042
     Dates: start: 20100201, end: 20100315
  4. VITAMIN B-12 [Concomitant]
     Indication: PROPHYLAXIS
     Dates: start: 20100126, end: 20100622
  5. SIMVASTATIN [Concomitant]
     Indication: HYPERCHOLESTEROLAEMIA
     Dates: start: 20091101
  6. VITAMIN D [Concomitant]
     Indication: OSTEOPOROSIS
     Dates: start: 20091101
  7. PEMETREXED [Suspect]
     Indication: NON-SMALL CELL LUNG CANCER STAGE III
     Dosage: 500 MG/M2, EVERY 3 WEEKS
     Route: 042
     Dates: start: 20100201, end: 20100315
  8. RADIATION [Suspect]
     Indication: NON-SMALL CELL LUNG CANCER STAGE III
     Dosage: 6600 GY, GIVEN OVER 33 DOSES
     Dates: start: 20100201, end: 20100317
  9. CITALOPRAM HYDROBROMIDE [Concomitant]
     Indication: ANXIETY
     Dates: start: 20100526
  10. MONTELUKAST SODIUM [Concomitant]
     Indication: EMPHYSEMA
     Dates: start: 20080501
  11. ALBUTEROL [Concomitant]
     Indication: EMPHYSEMA
     Dates: start: 20080501
  12. LORAZEPAM [Concomitant]
     Indication: ANXIETY
     Dates: start: 20100526
  13. TIOTROPIUM [Concomitant]
     Indication: EMPHYSEMA
     Dates: start: 20090501
  14. FOLIC ACID [Concomitant]
     Indication: PROPHYLAXIS
     Dates: start: 20100125, end: 20100817
  15. DEXAMETHASONE [Concomitant]
     Indication: PROPHYLAXIS
     Dates: start: 20100131, end: 20100623
  16. LEVOFLOXACIN [Concomitant]
     Indication: PYREXIA
     Dates: start: 20110121
  17. FLUTICASONE W/SALMETEROL [Concomitant]
     Dates: start: 20080501

REACTIONS (1)
  - PERICARDIAL EFFUSION [None]
